FAERS Safety Report 26109186 (Version 5)
Quarter: 2025Q4

REPORT INFORMATION
  Report Type: Spontaneous
  Country: EU (occurrence: EU)
  Receive Date: 20251201
  Receipt Date: 20251231
  Transmission Date: 20260118
  Serious: Yes (Other)
  Sender: PFIZER
  Company Number: EU-PFIZER INC-PV202500141054

PATIENT
  Age: 51 Year
  Sex: Female
  Weight: 70 kg

DRUGS (6)
  1. INFLIXIMAB [Suspect]
     Active Substance: INFLIXIMAB
     Indication: Diarrhoea haemorrhagic
     Dosage: 5 MG/KG = 350 MG AT TIME ZERO (NOVEMBER 2023) AND FOR 6 WEEKS AND THEN EVERY 8 WEEKS THEREAFTER
     Route: 042
     Dates: start: 20231101, end: 20250114
  2. INFLIXIMAB [Suspect]
     Active Substance: INFLIXIMAB
     Indication: Colitis ulcerative
  3. INFLIXIMAB [Suspect]
     Active Substance: INFLIXIMAB
     Indication: Vitiligo
  4. INFLIXIMAB [Suspect]
     Active Substance: INFLIXIMAB
     Indication: Uveitis
  5. MESALAMINE [Concomitant]
     Active Substance: MESALAMINE
     Indication: Uveitis
     Dosage: 3.6 MG, DAILY
  6. MESALAMINE [Concomitant]
     Active Substance: MESALAMINE
     Indication: Vitiligo

REACTIONS (5)
  - Suffocation feeling [Recovering/Resolving]
  - Body temperature increased [Recovered/Resolved]
  - Chest pain [Unknown]
  - Chest discomfort [Recovering/Resolving]
  - Off label use [Unknown]

NARRATIVE: CASE EVENT DATE: 20250114
